FAERS Safety Report 22130785 (Version 4)
Quarter: 2023Q2

REPORT INFORMATION
  Report Type: Report from Study
  Country: GB (occurrence: GB)
  Receive Date: 20230323
  Receipt Date: 20230628
  Transmission Date: 20230721
  Serious: Yes (Hospitalization)
  Sender: FDA-Public Use
  Company Number: GB-PFIZER INC-PV202300049416

PATIENT
  Age: 30 Year
  Sex: Male
  Weight: 88 kg

DRUGS (3)
  1. CARBOPLATIN [Suspect]
     Active Substance: CARBOPLATIN
     Indication: Anal cancer
     Dosage: AUC 5 CYCLIC (DAY 1 OF EACH 28-DAY CYCLE)
     Route: 042
  2. PACLITAXEL [Suspect]
     Active Substance: PACLITAXEL
     Indication: Anal cancer
     Dosage: 80 MG/M2, CYCLIC (DAYS 1, 8 AND 15 OF EACH 28-DAY CYCLE)
     Route: 042
  3. INVESTIGATIONAL PRODUCT [Suspect]
     Active Substance: INVESTIGATIONAL PRODUCT
     Indication: Anal cancer
     Dosage: UNK
     Dates: start: 20230119, end: 20230222

REACTIONS (2)
  - Wound infection [Recovered/Resolved]
  - Fungating wound [Recovering/Resolving]

NARRATIVE: CASE EVENT DATE: 20230215
